FAERS Safety Report 7907826-8 (Version None)
Quarter: 2011Q4

REPORT INFORMATION
  Report Type: 
  Country: None (occurrence: None)
  Receive Date: 20111110
  Receipt Date: 20111102
  Transmission Date: 20120403
  Serious: Yes (Hospitalization, Other)
  Sender: FDA-Public Use
  Company Number: FR-PFIZER INC-2011267811

PATIENT
  Age: 63 Year
  Sex: Male

DRUGS (4)
  1. ZYPREXA [Concomitant]
  2. ESCITALOPRAM OXALATE [Concomitant]
  3. XANAX [Suspect]
     Dosage: 0.25 MG, 1X/DAY
     Route: 048
     Dates: end: 20111004
  4. IMOVANE [Concomitant]

REACTIONS (7)
  - MYOGLOBIN BLOOD INCREASED [None]
  - WITHDRAWAL SYNDROME [None]
  - ELECTROENCEPHALOGRAM ABNORMAL [None]
  - CEREBRAL ATROPHY [None]
  - GAMMA-GLUTAMYLTRANSFERASE INCREASED [None]
  - BLOOD LACTIC ACID INCREASED [None]
  - CELL DEATH [None]
